FAERS Safety Report 21719736 (Version 1)
Quarter: 2022Q4

REPORT INFORMATION
  Report Type: Spontaneous
  Country: US (occurrence: None)
  Receive Date: 20221213
  Receipt Date: 20221213
  Transmission Date: 20230113
  Serious: No
  Sender: FDA-Public Use
  Company Number: 2022A396078

PATIENT
  Age: 91 Year
  Sex: Female

DRUGS (3)
  1. SEROQUEL [Suspect]
     Active Substance: QUETIAPINE FUMARATE
     Indication: Death of relative
     Route: 048
     Dates: start: 20190103
  2. CHLORHEXIDINE [Concomitant]
     Active Substance: CHLORHEXIDINE
     Route: 065
  3. AZITHROMYCIN [Concomitant]
     Active Substance: AZITHROMYCIN
     Route: 065

REACTIONS (8)
  - Mental disorder [Unknown]
  - Confusional state [Unknown]
  - Sedation [Unknown]
  - Dementia [Unknown]
  - Fall [Unknown]
  - Sleep apnoea syndrome [Unknown]
  - Victim of elder abuse [Not Recovered/Not Resolved]
  - Product prescribing issue [Unknown]

NARRATIVE: CASE EVENT DATE: 20190103
